FAERS Safety Report 7274254-0 (Version None)
Quarter: 2011Q1

REPORT INFORMATION
  Report Type: 
  Country: None (occurrence: None)
  Receive Date: 20110204
  Receipt Date: 20110126
  Transmission Date: 20110831
  Serious: No
  Sender: FDA-Public Use
  Company Number: US-BIOGENIDEC-2011BI003724

PATIENT
  Age: 50 Year
  Sex: Female

DRUGS (1)
  1. AVONEX [Suspect]
     Indication: MULTIPLE SCLEROSIS
     Route: 030
     Dates: start: 20060501

REACTIONS (7)
  - DEPRESSION [None]
  - PAIN IN EXTREMITY [None]
  - GAIT DISTURBANCE [None]
  - EYE DISORDER [None]
  - PARAESTHESIA [None]
  - GASTROINTESTINAL DISORDER [None]
  - HYPOAESTHESIA [None]
